FAERS Safety Report 25331732 (Version 1)
Quarter: 2025Q2

REPORT INFORMATION
  Report Type: Spontaneous
  Country: US (occurrence: US)
  Receive Date: 20250519
  Receipt Date: 20250519
  Transmission Date: 20250717
  Serious: No
  Sender: ROCHE
  Company Number: US-ROCHE-10000276843

PATIENT
  Age: 19 Year
  Sex: Female
  Weight: 58.96 kg

DRUGS (2)
  1. XOLAIR [Suspect]
     Active Substance: OMALIZUMAB
     Indication: Chronic spontaneous urticaria
     Dosage: TAKES 2- XOLAIR 150MG FOR A TOTAL OF 300MG
     Route: 058
     Dates: start: 202409
  2. ZYRTEC [Concomitant]
     Active Substance: CETIRIZINE HYDROCHLORIDE
     Indication: Seasonal allergy
     Dates: start: 202504

REACTIONS (1)
  - Urticaria [Unknown]
